FAERS Safety Report 16495110 (Version 1)
Quarter: 2019Q2

REPORT INFORMATION
  Report Type: Spontaneous
  Country: GB (occurrence: GB)
  Receive Date: 20190628
  Receipt Date: 20190628
  Transmission Date: 20190711
  Serious: Yes (Other)
  Sender: FDA-Public Use
  Company Number: GB-NOVOPROD-669076

PATIENT
  Age: 63 Year
  Sex: Female
  Weight: 45 kg

DRUGS (8)
  1. NYSTAN [Concomitant]
     Active Substance: NYSTATIN
     Dosage: 8 ML, QD
     Dates: start: 20181023
  2. DOXYCYCLINE. [Concomitant]
     Active Substance: DOXYCYCLINE
     Dosage: TWO NOW THEN ONE DAILY.
     Dates: start: 20190111
  3. VAGIFEM [Suspect]
     Active Substance: ESTRADIOL
     Indication: PRODUCT USED FOR UNKNOWN INDICATION
     Dosage: 10 ?G, ONE DAILY FOR TWO WEEKS, THEN ONE TWICE A WEEK
     Route: 067
     Dates: start: 20190502
  4. PREDNISOLONE. [Concomitant]
     Active Substance: PREDNISOLONE
     Dosage: 6 DF, QD, FOR 5 DAYS , RESCUE MEDICATION
     Dates: start: 20180604
  5. AMOROLFINE [Concomitant]
     Active Substance: AMOROLFINE
     Dosage: APPLIED TO THE AFFECTED FINGER OR TOE NAILS.
     Dates: start: 20181101
  6. TRIMBOW [Concomitant]
     Active Substance: BECLOMETHASONE DIPROPIONATE\FORMOTEROL FUMARATE\GLYCOPYRROLATE
     Dosage: 4 DF, QD
     Dates: start: 20190219
  7. ELLESTE DUET [Concomitant]
     Active Substance: ESTRADIOL\NORETHINDRONE ACETATE
     Dosage: 1 DF, QD
     Route: 065
     Dates: start: 20170404
  8. SALBUTAMOL [Concomitant]
     Active Substance: ALBUTEROL
     Dosage: 2 DF AS NECESSARY
     Route: 055
     Dates: start: 20190212

REACTIONS (2)
  - Vulvovaginal inflammation [Unknown]
  - Vulvovaginal discomfort [Recovered/Resolved]

NARRATIVE: CASE EVENT DATE: 20190521
